FAERS Safety Report 5257019-0 (Version None)
Quarter: 2007Q1

REPORT INFORMATION
  Report Type: 
  Country: None (occurrence: None)
  Receive Date: 20070307
  Receipt Date: 20070301
  Transmission Date: 20070707
  Serious: Yes (Hospitalization)
  Sender: FDA-Public Use
  Company Number: 2007PK00547

PATIENT
  Age: 18742 Day
  Sex: Male
  Weight: 70 kg

DRUGS (3)
  1. IRESSA [Suspect]
     Route: 048
     Dates: start: 20070104
  2. GEMCITABINE [Suspect]
     Route: 042
  3. CISPLATIN [Suspect]
     Route: 042

REACTIONS (2)
  - PLEURAL EFFUSION [None]
  - PNEUMONIA [None]
